FAERS Safety Report 4937424-X (Version None)
Quarter: 2006Q1

REPORT INFORMATION
  Report Type: 
  Country: None (occurrence: None)
  Receive Date: 20060302
  Receipt Date: 20060208
  Transmission Date: 20060701
  Serious: Yes (Hospitalization, Other)
  Sender: FDA-Public Use
  Company Number: JP200512003975

PATIENT
  Age: 78 Year
  Sex: Female

DRUGS (11)
  1. EVISTA [Suspect]
     Indication: OSTEOPOROSIS
     Dosage: 60  MG, DAILY (1/D), ORAL
     Route: 048
     Dates: start: 20051103, end: 20051222
  2. SHAKUYAKUKANZOUBUSHITOU (HERBAL EXTRACTS NOS) [Concomitant]
  3. ACONINSUN (ACONITE) [Concomitant]
  4. BLOPRESS (CANDESARTAN CILEXETIL) [Concomitant]
  5. DOXAZOSIN MESYLATE [Concomitant]
  6. FAMOTIDINE [Concomitant]
  7. NORVASC [Concomitant]
  8. FERROMIA (FERROUS CITRATE) [Concomitant]
  9. POLYCARBOPHIL CALCIUM (POLYCARBOPHIL CALCIUM) [Concomitant]
  10. ONE-ALPHA (ALFACALCIDOL) [Concomitant]
  11. METHYCOBAL (MECOBALAMIN) [Concomitant]

REACTIONS (10)
  - ALANINE AMINOTRANSFERASE INCREASED [None]
  - ASPARTATE AMINOTRANSFERASE INCREASED [None]
  - DIFFICULTY IN WALKING [None]
  - HEMIPARESIS [None]
  - HYPOKALAEMIA [None]
  - OCCULT BLOOD POSITIVE [None]
  - OEDEMA [None]
  - OLIGURIA [None]
  - RENAL IMPAIRMENT [None]
  - RHABDOMYOLYSIS [None]
